FAERS Safety Report 17976681 (Version 1)
Quarter: 2020Q3

REPORT INFORMATION
  Report Type: Spontaneous
  Country: CN (occurrence: CN)
  Receive Date: 20200703
  Receipt Date: 20200703
  Transmission Date: 20201103
  Serious: Yes (Hospitalization)
  Sender: FDA-Public Use
  Company Number: CN-ROCHE-2635702

PATIENT
  Age: 60 Year
  Sex: Female
  Weight: 51 kg

DRUGS (18)
  1. HERCEPTIN [Suspect]
     Active Substance: TRASTUZUMAB
     Indication: METASTASES TO LUNG
  2. VINORELBINE TARTRATE. [Suspect]
     Active Substance: VINORELBINE TARTRATE
     Indication: METASTASES TO SOFT TISSUE
  3. HERCEPTIN [Suspect]
     Active Substance: TRASTUZUMAB
     Indication: METASTASES TO CHEST WALL
  4. VINORELBINE TARTRATE. [Suspect]
     Active Substance: VINORELBINE TARTRATE
     Indication: METASTASES TO LYMPH NODES
  5. RALTITREXED [Suspect]
     Active Substance: RALTITREXED
     Indication: METASTASES TO LYMPH NODES
  6. HERCEPTIN [Suspect]
     Active Substance: TRASTUZUMAB
     Indication: METASTASES TO SOFT TISSUE
  7. VINORELBINE TARTRATE. [Suspect]
     Active Substance: VINORELBINE TARTRATE
     Indication: BREAST CANCER
     Route: 041
     Dates: start: 20200506, end: 20200506
  8. VINORELBINE TARTRATE. [Suspect]
     Active Substance: VINORELBINE TARTRATE
     Indication: METASTASES TO LUNG
  9. HERCEPTIN [Suspect]
     Active Substance: TRASTUZUMAB
     Indication: METASTASES TO LIVER
  10. HERCEPTIN [Suspect]
     Active Substance: TRASTUZUMAB
     Indication: METASTASES TO LYMPH NODES
  11. RALTITREXED [Suspect]
     Active Substance: RALTITREXED
     Indication: METASTASES TO LUNG
  12. RALTITREXED [Suspect]
     Active Substance: RALTITREXED
     Indication: METASTASES TO SOFT TISSUE
  13. RALTITREXED [Suspect]
     Active Substance: RALTITREXED
     Indication: METASTASES TO CHEST WALL
  14. VINORELBINE TARTRATE. [Suspect]
     Active Substance: VINORELBINE TARTRATE
     Indication: METASTASES TO LIVER
  15. RALTITREXED [Suspect]
     Active Substance: RALTITREXED
     Indication: BREAST CANCER
     Route: 041
     Dates: start: 20200506, end: 20200506
  16. HERCEPTIN [Suspect]
     Active Substance: TRASTUZUMAB
     Indication: BREAST CANCER
     Route: 041
     Dates: start: 20200506, end: 20200506
  17. VINORELBINE TARTRATE. [Suspect]
     Active Substance: VINORELBINE TARTRATE
     Indication: METASTASES TO CHEST WALL
  18. RALTITREXED [Suspect]
     Active Substance: RALTITREXED
     Indication: METASTASES TO LIVER

REACTIONS (1)
  - Myelosuppression [Recovering/Resolving]

NARRATIVE: CASE EVENT DATE: 20200511
